FAERS Safety Report 19510599 (Version 1)
Quarter: 2021Q3

REPORT INFORMATION
  Report Type: Spontaneous
  Country: FR (occurrence: FR)
  Receive Date: 20210709
  Receipt Date: 20210709
  Transmission Date: 20211014
  Serious: Yes (Life-Threatening, Hospitalization)
  Sender: FDA-Public Use
  Company Number: FR-TEVA-2021-FR-1929879

PATIENT
  Age: 52 Year
  Sex: Male

DRUGS (8)
  1. VANCOMYCINE [Suspect]
     Active Substance: VANCOMYCIN
     Indication: ENTERITIS
     Route: 042
     Dates: start: 20210510, end: 20210514
  2. BACTRIM [Suspect]
     Active Substance: SULFAMETHOXAZOLE\TRIMETHOPRIM
     Indication: OPPORTUNISTIC INFECTION PROPHYLAXIS
     Dosage: 3DOSAGEFORM
     Dates: start: 20210517, end: 20210525
  3. LEVOFLOXACINE [Suspect]
     Active Substance: LEVOFLOXACIN
     Indication: OPPORTUNISTIC INFECTION PROPHYLAXIS
     Dosage: 500MILLIGRAM
     Route: 048
     Dates: start: 20210428, end: 20210510
  4. ZELITREX [Suspect]
     Active Substance: VALACYCLOVIR HYDROCHLORIDE
     Indication: ANTIVIRAL PROPHYLAXIS
     Dosage: 500MILLIGRAM
     Route: 048
     Dates: start: 20210427
  5. FUNGIZONE [Suspect]
     Active Substance: AMPHOTERICIN B
     Indication: ANTIFUNGAL PROPHYLAXIS
     Dosage: 3 DOSAGE FORMS DAILY; 3 TBSP. PER DAY
     Dates: start: 20210427, end: 20210525
  6. TAZOCILLINE [Suspect]
     Active Substance: PIPERACILLIN SODIUM\TAZOBACTAM SODIUM
     Indication: FEBRILE NEUTROPENIA
     Dosage: 16GRAM
     Route: 042
     Dates: start: 20210509, end: 20210514
  7. TAZOCILLINE [Suspect]
     Active Substance: PIPERACILLIN SODIUM\TAZOBACTAM SODIUM
     Dosage: 16GRAM
     Route: 042
     Dates: start: 20210517, end: 20210519
  8. TAZOCILLINE [Suspect]
     Active Substance: PIPERACILLIN SODIUM\TAZOBACTAM SODIUM
     Dosage: 16GRAM
     Route: 042
     Dates: start: 20210528, end: 20210531

REACTIONS (1)
  - Drug reaction with eosinophilia and systemic symptoms [Not Recovered/Not Resolved]

NARRATIVE: CASE EVENT DATE: 20210518
